FAERS Safety Report 11726828 (Version 1)
Quarter: 2015Q4

REPORT INFORMATION
  Report Type: Report from Study
  Country: GB (occurrence: GB)
  Receive Date: 20151112
  Receipt Date: 20151112
  Transmission Date: 20160304
  Serious: Yes (Other)
  Sender: FDA-Public Use
  Company Number: GB-BRISTOL-MYERS SQUIBB COMPANY-13581921

PATIENT
  Age: 31 Year
  Sex: Female
  Weight: 60.5 kg

DRUGS (8)
  1. EPIVIR [Concomitant]
     Active Substance: LAMIVUDINE
     Indication: RETROVIRAL INFECTION
     Dosage: 300 MG, QD
     Route: 048
  2. NORVIR [Concomitant]
     Active Substance: RITONAVIR
     Indication: RETROVIRAL INFECTION
     Dosage: 100 MG, QD
     Route: 048
  3. COMBIVIR [Concomitant]
     Active Substance: LAMIVUDINE\ZIDOVUDINE
     Indication: HIV INFECTION
     Route: 065
  4. VALGANCICLOVIR [Concomitant]
     Active Substance: VALGANCICLOVIR
     Indication: CYTOMEGALOVIRUS TEST
     Dosage: UNK
     Route: 048
     Dates: start: 20040915
  5. ATAZANAVIR SULFATE [Suspect]
     Active Substance: ATAZANAVIR SULFATE
     Indication: RETROVIRAL INFECTION
     Dosage: 300 MG, QD
     Route: 048
  6. DIDANOSINE. [Concomitant]
     Active Substance: DIDANOSINE
     Indication: RETROVIRAL INFECTION
     Dosage: 250 MG, QD
     Route: 048
     Dates: start: 20040901
  7. FUZEON [Concomitant]
     Active Substance: ENFUVIRTIDE
     Indication: HIV INFECTION
     Dosage: 90 MG, BID
     Route: 058
  8. COTRIMOXAZOLE [Concomitant]
     Active Substance: SULFAMETHOXAZOLE\TRIMETHOPRIM
     Indication: ANTIFUNGAL PROPHYLAXIS
     Dosage: UNK
     Route: 048
     Dates: start: 20040715, end: 20040715

REACTIONS (5)
  - Abortion spontaneous [Unknown]
  - Pregnancy [Recovered/Resolved]
  - Placental infarction [Unknown]
  - Umbilical cord abnormality [Unknown]
  - Foetal death [Unknown]

NARRATIVE: CASE EVENT DATE: 2006
